FAERS Safety Report 9574527 (Version 2)
Quarter: 2013Q4

REPORT INFORMATION
  Report Type: Report from Study
  Country: JP (occurrence: JP)
  Receive Date: 20131001
  Receipt Date: 20131025
  Transmission Date: 20140711
  Serious: Yes (Death)
  Sender: FDA-Public Use
  Company Number: JP-TAKEDA-2013TJP001314

PATIENT
  Age: 75 Year
  Sex: Male

DRUGS (13)
  1. LANSOPRAZOLE [Suspect]
     Indication: PROPHYLAXIS AGAINST GASTROINTESTINAL ULCER
     Dosage: 15 MG,QD
     Route: 048
     Dates: start: 20120725, end: 20121029
  2. BAYASPIRIN [Concomitant]
     Indication: THROMBOSIS PROPHYLAXIS
     Route: 048
  3. BAYASPIRIN [Concomitant]
     Route: 048
  4. PLAVIX [Concomitant]
     Indication: MYOCARDIAL INFARCTION
     Route: 048
  5. PLAVIX [Concomitant]
     Route: 048
  6. ARTIST [Concomitant]
     Route: 048
  7. ARTIST [Concomitant]
     Route: 048
  8. AMIODARONE HYDROCHLORIDE [Concomitant]
     Indication: VENTRICULAR TACHYCARDIA
     Route: 048
  9. AMIODARONE HYDROCHLORIDE [Concomitant]
     Route: 048
  10. ONEALFA [Concomitant]
     Route: 048
  11. ONEALFA [Concomitant]
     Route: 048
  12. ZETIA [Concomitant]
     Indication: DYSLIPIDAEMIA
     Route: 048
     Dates: start: 20121029
  13. ZETIA [Concomitant]
     Route: 048
     Dates: start: 20121029, end: 20121031

REACTIONS (1)
  - Sudden cardiac death [Fatal]
